FAERS Safety Report 5100059-2 (Version None)
Quarter: 2006Q3

REPORT INFORMATION
  Report Type: 
  Country: None (occurrence: None)
  Receive Date: 20060906
  Receipt Date: 20060825
  Transmission Date: 20061208
  Serious: Yes (Other)
  Sender: FDA-Public Use
  Company Number: GXKR2006US05278

PATIENT
  Age: 36 Year
  Sex: Female
  Weight: 50 kg

DRUGS (2)
  1. METHIMAZOLE [Suspect]
     Indication: HYPERTHYROIDISM
     Dosage: 20 MG , BID
     Dates: start: 20000211, end: 20000302
  2. PROPRANOLOL HYDROCHLORIDE [Concomitant]

REACTIONS (2)
  - ALANINE AMINOTRANSFERASE ABNORMAL [None]
  - CHOLESTASIS [None]
